FAERS Safety Report 10243780 (Version 1)
Quarter: 2014Q1

REPORT INFORMATION
  Report Type: Spontaneous
  Country: US (occurrence: None)
  Receive Date: 20140306
  Receipt Date: 20140306
  Transmission Date: 20141002
  Serious: Yes (Hospitalization)
  Sender: FDA-Public Use
  Company Number: 163-21880-13113867

PATIENT
  Age: 46 Year
  Sex: Male
  Weight: 68.9 kg

DRUGS (7)
  1. REVLIMID (LENALIDOMIDE) (10 MILLIGRAM, CAPSULES) [Suspect]
     Indication: PLASMA CELL MYELOMA
     Dosage: 10MG, 14 IN 14D, PO
     Route: 048
     Dates: start: 2010
  2. PREDNISONE (PREDNISONE) [Concomitant]
  3. MUCINEX (GUAIFENESIN) [Concomitant]
  4. VALTREX (VALACICLOVIR HYDROCHLORIDE) [Concomitant]
  5. ALLOPURINOL (ALLOPURINOL) [Concomitant]
  6. DELSYM (DEXTROMETHORPHAN HYDROBROMIDE) [Concomitant]
  7. PROTONIX [Concomitant]

REACTIONS (1)
  - Bronchitis [None]
